FAERS Safety Report 5244262-X (Version None)
Quarter: 2007Q1

REPORT INFORMATION
  Report Type: 
  Country: None (occurrence: None)
  Receive Date: 20070222
  Receipt Date: 20070212
  Transmission Date: 20070707
  Serious: Yes (Hospitalization)
  Sender: FDA-Public Use
  Company Number: CA-JNJFOC-20060403379

PATIENT
  Sex: Male
  Weight: 63 kg

DRUGS (2)
  1. REMICADE [Suspect]
     Route: 042
  2. REMICADE [Suspect]
     Indication: DRUG USE FOR UNKNOWN INDICATION
     Dosage: NINE INFUSIONS, DATES UNSPECIFIED
     Route: 042

REACTIONS (2)
  - INTESTINAL RESECTION [None]
  - POSTOPERATIVE WOUND INFECTION [None]
